FAERS Safety Report 8226428-X (Version None)
Quarter: 2012Q1

REPORT INFORMATION
  Report Type: 
  Country: None (occurrence: None)
  Receive Date: 20120321
  Receipt Date: 20120314
  Transmission Date: 20120608
  Serious: Yes (Hospitalization, Other)
  Sender: FDA-Public Use
  Company Number: US-CELGENEUS-163-21880-11123650

PATIENT
  Sex: Male
  Weight: 90.8 kg

DRUGS (25)
  1. PRILOSEC [Concomitant]
     Route: 065
  2. VYTORIN [Concomitant]
     Dosage: 10/40
     Route: 065
  3. OMEPRAZOLE [Concomitant]
     Dosage: 20 MILLIGRAM
     Route: 065
  4. METHADONE HCL [Concomitant]
     Indication: MIGRAINE
     Dosage: 15 MILLIGRAM
     Route: 065
  5. LYRICA [Concomitant]
     Dosage: 100 MILLIGRAM
     Route: 065
  6. POTASSIUM CHLORIDE [Concomitant]
     Dosage: 10 MILLIEQUIVALENTS
     Route: 065
  7. DEXAMETHASONE [Concomitant]
     Route: 065
  8. LASIX [Concomitant]
     Dosage: 20 MILLIGRAM
     Route: 065
  9. DUONEB [Concomitant]
     Route: 065
  10. REVLIMID [Suspect]
     Indication: MULTIPLE MYELOMA
     Dosage: 25 MILLIGRAM
     Route: 048
     Dates: start: 20111007
  11. ALLEGRA [Concomitant]
     Route: 065
  12. ALBUTEROL [Concomitant]
     Dosage: 2 PUFFS
     Route: 065
  13. PERCOCET [Concomitant]
     Indication: MIGRAINE
     Dosage: 10/325
     Route: 065
  14. HEPARIN [Concomitant]
     Route: 065
  15. COUMADIN [Concomitant]
     Route: 065
  16. IMITREX [Concomitant]
     Indication: MIGRAINE
     Route: 065
  17. NASAREL [Concomitant]
     Dosage: 2 SPRAYS TO EACH NOSTRIL
     Route: 045
  18. LORAZEPAM [Concomitant]
     Dosage: 1 MILLIGRAM
     Route: 065
  19. MOBIC [Concomitant]
     Dosage: 7.5 MILLIGRAM
     Route: 065
  20. TYLENOL [Concomitant]
     Indication: PAIN
     Dosage: 10 GRAM
     Route: 065
  21. ZOMIG [Concomitant]
     Indication: MIGRAINE
     Dosage: 5 MILLIGRAM
     Route: 065
  22. LASIX [Concomitant]
     Route: 065
     Dates: start: 20111201, end: 20111201
  23. AMITRIPTYLINE HCL [Concomitant]
     Dosage: 100 MILLIGRAM
     Route: 065
  24. PROZAC [Concomitant]
     Dosage: 20 MILLIGRAM
     Route: 065
  25. ASPIRIN [Concomitant]
     Route: 065

REACTIONS (3)
  - MEDICAL DEVICE COMPLICATION [None]
  - DEEP VEIN THROMBOSIS [None]
  - PULMONARY EMBOLISM [None]
